FAERS Safety Report 13380149 (Version 1)
Quarter: 2017Q1

REPORT INFORMATION
  Report Type: Spontaneous
  Country: FI (occurrence: FI)
  Receive Date: 20170328
  Receipt Date: 20170328
  Transmission Date: 20170429
  Serious: Yes (Hospitalization, Other)
  Sender: FDA-Public Use
  Company Number: FI-ELI_LILLY_AND_COMPANY-FI201703007333

PATIENT
  Age: 84 Year
  Sex: Female

DRUGS (7)
  1. EMCONCOR [Concomitant]
     Active Substance: BISOPROLOL FUMARATE
     Dosage: 1.25 MG, BID
     Route: 048
  2. OFTAGEL [Concomitant]
     Active Substance: CARBOMER
     Dosage: 1 GTT, UNKNOWN
  3. ZYPADHERA [Suspect]
     Active Substance: OLANZAPINE PAMOATE
     Indication: PSYCHOTIC DISORDER
     Dosage: 150 MG, SINGLE
     Route: 030
     Dates: start: 20170208, end: 20170208
  4. PEGORION [Concomitant]
     Active Substance: POLYETHYLENE GLYCOL 4000
     Dosage: 6 G, BID
     Route: 065
  5. KALEORID [Concomitant]
     Active Substance: POTASSIUM CHLORIDE
     Dosage: 1 G, QD
     Route: 048
  6. HYDREX                             /00022001/ [Concomitant]
     Dosage: 12.5 MG, QD
     Route: 048
  7. MAREVAN [Concomitant]
     Active Substance: WARFARIN SODIUM
     Dosage: 5 MG, QD
     Route: 048

REACTIONS (9)
  - Carotid artery calcification [Unknown]
  - Restlessness [Recovering/Resolving]
  - Atrial fibrillation [Unknown]
  - Time perception altered [Unknown]
  - Extensor plantar response [Unknown]
  - Depressed level of consciousness [Recovering/Resolving]
  - Dysarthria [Recovering/Resolving]
  - Neurodegenerative disorder [Unknown]
  - Aphasia [Unknown]

NARRATIVE: CASE EVENT DATE: 20170208
